FAERS Safety Report 18432100 (Version 1)
Quarter: 2020Q4

REPORT INFORMATION
  Report Type: Spontaneous
  Country: CA (occurrence: CA)
  Receive Date: 20201027
  Receipt Date: 20201027
  Transmission Date: 20210114
  Serious: Yes (Other)
  Sender: FDA-Public Use
  Company Number: None

PATIENT
  Age: 8 Year
  Sex: Male
  Weight: 30 kg

DRUGS (10)
  1. PEG 3350 (LAXADAY) [Concomitant]
  2. VITAMIN D [Concomitant]
     Active Substance: VITAMIN D NOS
  3. FELBAMATE. [Suspect]
     Active Substance: FELBAMATE
     Indication: LENNOX-GASTAUT SYNDROME
     Route: 048
     Dates: start: 20200915, end: 20201027
  4. GLYCOPYROLATE [Concomitant]
     Active Substance: GLYCOPYRROLATE
  5. CLOBAZAM. [Concomitant]
     Active Substance: CLOBAZAM
  6. ETHOSUXIMIDE. [Concomitant]
     Active Substance: ETHOSUXIMIDE
     Dates: end: 20201013
  7. OMEPRAZOLE. [Concomitant]
     Active Substance: OMEPRAZOLE
  8. LEVETIRACETAM. [Concomitant]
     Active Substance: LEVETIRACETAM
  9. ADVAIR HFA [Concomitant]
     Active Substance: FLUTICASONE PROPIONATE\SALMETEROL XINAFOATE
  10. LEVOCARNITINE. [Concomitant]
     Active Substance: LEVOCARNITINE

REACTIONS (3)
  - Alanine aminotransferase increased [None]
  - Aspartate aminotransferase increased [None]
  - Gamma-glutamyltransferase increased [None]

NARRATIVE: CASE EVENT DATE: 20201026
